FAERS Safety Report 12568350 (Version 1)
Quarter: 2016Q3

REPORT INFORMATION
  Report Type: Report from Study
  Country: BR (occurrence: BR)
  Receive Date: 20160718
  Receipt Date: 20160718
  Transmission Date: 20161109
  Serious: Yes (Other)
  Sender: FDA-Public Use
  Company Number: PHHY2016BR097070

PATIENT
  Sex: Male
  Weight: 75 kg

DRUGS (1)
  1. EXELON PATCH [Suspect]
     Active Substance: RIVASTIGMINE
     Indication: DEMENTIA ALZHEIMER^S TYPE
     Dosage: 9.5 MG, QD (10 CM2 PATCH)
     Route: 062
     Dates: start: 201510

REACTIONS (2)
  - Ligament sprain [Unknown]
  - Femur fracture [Recovering/Resolving]
